FAERS Safety Report 9412212 (Version 1)
Quarter: 2013Q3

REPORT INFORMATION
  Report Type: Spontaneous
  Country: US (occurrence: None)
  Receive Date: 20130719
  Receipt Date: 20130719
  Transmission Date: 20140515
  Serious: Yes (Other)
  Sender: FDA-Public Use
  Company Number: None

PATIENT
  Sex: Female
  Weight: 72.58 kg

DRUGS (1)
  1. TRAMADOL [Suspect]
     Indication: BACK INJURY
     Route: 048
     Dates: start: 201210

REACTIONS (4)
  - Dyskinesia [None]
  - Head titubation [None]
  - Tremor [None]
  - Middle insomnia [None]
